FAERS Safety Report 10596015 (Version 2)
Quarter: 2015Q1

REPORT INFORMATION
  Report Type: Report from Study
  Country: BR (occurrence: BR)
  Receive Date: 20141120
  Receipt Date: 20150324
  Transmission Date: 20150720
  Serious: Yes (Other)
  Sender: FDA-Public Use
  Company Number: BR-BRISTOL-MYERS SQUIBB COMPANY-21593579

PATIENT
  Age: 66 Year
  Sex: Female

DRUGS (2)
  1. PARACETAMOL [Suspect]
     Active Substance: ACETAMINOPHEN
     Indication: PRODUCT USED FOR UNKNOWN INDICATION
     Route: 065
  2. ABATACEPT [Suspect]
     Active Substance: ABATACEPT
     Indication: RHEUMATOID ARTHRITIS
     Dosage: UNK UNK, Q4WK
     Route: 042

REACTIONS (8)
  - Thyroid neoplasm [Unknown]
  - Tendon rupture [Unknown]
  - Ligament rupture [Not Recovered/Not Resolved]
  - Spinal pain [Unknown]
  - Aphthous stomatitis [Recovering/Resolving]
  - Tongue disorder [Unknown]
  - Gingival pain [Unknown]
  - Stomatitis [Unknown]

NARRATIVE: CASE EVENT DATE: 20141107
